FAERS Safety Report 7349698-9 (Version None)
Quarter: 2011Q1

REPORT INFORMATION
  Report Type: 
  Country: None (occurrence: None)
  Receive Date: 20110314
  Receipt Date: 20100921
  Transmission Date: 20110831
  Serious: Yes (Hospitalization, Other)
  Sender: FDA-Public Use
  Company Number: US-BAYER-201028644NA

PATIENT
  Sex: Female
  Weight: 58.05 kg

DRUGS (6)
  1. CARAFATE [Concomitant]
  2. YAZ [Suspect]
     Indication: PRODUCT USED FOR UNKNOWN INDICATION
     Route: 048
     Dates: start: 20080801, end: 20090615
  3. YASMIN [Suspect]
     Indication: PRODUCT USED FOR UNKNOWN INDICATION
     Route: 048
     Dates: start: 20060101, end: 20080615
  4. PREVACID [Concomitant]
     Dates: start: 20070101, end: 20090615
  5. IMITREX [Concomitant]
     Dates: start: 20080101
  6. PRILOSEC [Concomitant]

REACTIONS (4)
  - ABDOMINAL PAIN UPPER [None]
  - CHOLELITHIASIS [None]
  - LYMPHADENOPATHY [None]
  - CHOLECYSTITIS CHRONIC [None]
